FAERS Safety Report 18314804 (Version 1)
Quarter: 2020Q3

REPORT INFORMATION
  Report Type: Spontaneous
  Country: DE (occurrence: DE)
  Receive Date: 20200926
  Receipt Date: 20200926
  Transmission Date: 20201103
  Serious: Yes (Hospitalization)
  Sender: FDA-Public Use
  Company Number: DE-TEVA-2020-DE-1830747

PATIENT
  Age: 71 Year
  Sex: Female
  Weight: 60 kg

DRUGS (10)
  1. MAGNESIUM [Concomitant]
     Active Substance: MAGNESIUM
     Dosage: 600 MILLIGRAM DAILY; 1?0?1?0
  2. EVOLOCUMAB [Concomitant]
     Active Substance: EVOLOCUMAB
     Dosage: NK MG / 2 WEEKS, 1X
     Route: 058
  3. PHENPROCOUMON [Concomitant]
     Active Substance: PHENPROCOUMON
     Dosage: 3 MG, ACCORDING TO THE SCHEME
  4. COLECALCIFEROL (VITAMIN D) [Concomitant]
     Dosage: 20000 IU / 2 WEEKS
  5. METOPROLOL. [Suspect]
     Active Substance: METOPROLOL
     Dosage: 3 DOSAGE FORMS DAILY; 47.5 MG, 1.5?0?1.5?0
  6. ALLOPURINOL. [Concomitant]
     Active Substance: ALLOPURINOL
     Dosage: 150 MILLIGRAM DAILY; 1?0?0?0
  7. ACETYLSALICYLSAURE [Concomitant]
     Active Substance: ASPIRIN
     Dosage: 100 MILLIGRAM DAILY; 1?0?0?0
  8. DIGITOXIN [Suspect]
     Active Substance: DIGITOXIN
     Dosage: .07 MILLIGRAM DAILY; 1?0?0?0
  9. TORASEMID [Suspect]
     Active Substance: TORSEMIDE
     Dosage: 10 MG, 1?0.5?0?0
  10. SPIRONOLACTON [Suspect]
     Active Substance: SPIRONOLACTONE
     Dosage: 25 MILLIGRAM DAILY;  1?0?0?0

REACTIONS (7)
  - Syncope [Recovering/Resolving]
  - Dizziness [Recovering/Resolving]
  - Product prescribing error [Unknown]
  - Arrhythmia [Recovering/Resolving]
  - Atrial fibrillation [Recovering/Resolving]
  - Electrolyte imbalance [Recovering/Resolving]
  - Bradycardia [Recovering/Resolving]
